FAERS Safety Report 11726715 (Version 3)
Quarter: 2016Q1

REPORT INFORMATION
  Report Type: Spontaneous
  Country: US (occurrence: US)
  Receive Date: 20151112
  Receipt Date: 20160311
  Transmission Date: 20160525
  Serious: Yes (Hospitalization)
  Sender: FDA-Public Use
  Company Number: US-BEH-2015055576

PATIENT
  Age: 39 Year
  Sex: Female
  Weight: 112 kg

DRUGS (25)
  1. BERINERT [Suspect]
     Active Substance: HUMAN C1-ESTERASE INHIBITOR
     Indication: COMPLEMENT FACTOR ABNORMAL
     Dosage: 500 UNIT VIAL
     Route: 042
     Dates: start: 20150416
  2. CINRYZE [Suspect]
     Active Substance: HUMAN C1-ESTERASE INHIBITOR
  3. DIPHENHYDRAMINE HYDROCHLORIDE. [Concomitant]
     Active Substance: DIPHENHYDRAMINE HYDROCHLORIDE
  4. STERILE WATER FOR INJECTION [Concomitant]
     Active Substance: WATER
  5. VIMPAT [Concomitant]
     Active Substance: LACOSAMIDE
  6. SINGULAIR [Concomitant]
     Active Substance: MONTELUKAST SODIUM
  7. METOPROLOL TARTRATE. [Concomitant]
     Active Substance: METOPROLOL TARTRATE
  8. TOPIRAMATE. [Concomitant]
     Active Substance: TOPIRAMATE
  9. HEPARIN [Concomitant]
     Active Substance: HEPARIN SODIUM
  10. TRAMADOL. [Concomitant]
     Active Substance: TRAMADOL
  11. SODIUM CHLORIDE. [Concomitant]
     Active Substance: SODIUM CHLORIDE
  12. MIRAPEX [Concomitant]
     Active Substance: PRAMIPEXOLE DIHYDROCHLORIDE
  13. FERROUS SULFATE [Concomitant]
     Active Substance: FERROUS SULFATE\FERROUS SULFATE, DRIED
  14. COUMADIN [Concomitant]
     Active Substance: WARFARIN SODIUM
  15. SPIRONOLACTONE. [Concomitant]
     Active Substance: SPIRONOLACTONE
  16. VITAMIN D [Concomitant]
     Active Substance: CHOLECALCIFEROL
  17. EPIPEN [Concomitant]
     Active Substance: EPINEPHRINE
  18. LASIX [Concomitant]
     Active Substance: FUROSEMIDE
  19. KLOR-CON [Concomitant]
     Active Substance: POTASSIUM CHLORIDE
  20. ZYRTEC [Concomitant]
     Active Substance: CETIRIZINE HYDROCHLORIDE
  21. ZOFRAN [Concomitant]
     Active Substance: ONDANSETRON HYDROCHLORIDE
  22. RANEXA [Concomitant]
     Active Substance: RANOLAZINE
  23. GABAPENTIN. [Concomitant]
     Active Substance: GABAPENTIN
  24. ZANTAC [Concomitant]
     Active Substance: RANITIDINE HYDROCHLORIDE
  25. VITAMIN B12 [Concomitant]
     Active Substance: CYANOCOBALAMIN

REACTIONS (2)
  - Thrombosis [Recovered/Resolved]
  - Cerebrovascular accident [Recovered/Resolved]

NARRATIVE: CASE EVENT DATE: 20151028
